FAERS Safety Report 16917794 (Version 1)
Quarter: 2019Q4

REPORT INFORMATION
  Report Type: Spontaneous
  Country: GB (occurrence: GB)
  Receive Date: 20191015
  Receipt Date: 20191015
  Transmission Date: 20200122
  Serious: Yes (Other)
  Sender: FDA-Public Use
  Company Number: GB-AUROBINDO-AUR-APL-2019-066767

PATIENT
  Age: 25 Year
  Sex: Female

DRUGS (25)
  1. LEVETIRACETAM. [Suspect]
     Active Substance: LEVETIRACETAM
     Dosage: 250 MILLIGRAM, ONCE A DAY
     Route: 065
     Dates: start: 201903
  2. BRIVIACT [Suspect]
     Active Substance: BRIVARACETAM
     Dosage: 200 MILLIGRAM, ONCE A DAY, (100 MILLIGRAM, 2X/DAY (BID))
     Route: 065
     Dates: start: 201812
  3. BRIVIACT [Suspect]
     Active Substance: BRIVARACETAM
     Dosage: 20 MILLIGRAM, ONCE A DAY, (10 MILLIGRAM, 2X/DAY (BID))
     Route: 065
     Dates: start: 201805
  4. LAMOTRIGINE. [Concomitant]
     Active Substance: LAMOTRIGINE
     Dosage: 400 MILLIGRAM, ONCE A DAY, (200 MILLIGRAM, 2X/DAY (BID))
     Route: 065
  5. BRIVIACT [Suspect]
     Active Substance: BRIVARACETAM
     Dosage: 175 MILLIGRAM, ONCE A DAY (75MG AM AND 100MG PM, 2X/DAY (BID))
     Route: 065
     Dates: start: 201811
  6. LEVETIRACETAM. [Suspect]
     Active Substance: LEVETIRACETAM
     Dosage: 750 MILLIGRAM, ONCE A DAY, 250MG AM AND 500MG PM, 2X/DAY (BID)
     Route: 065
     Dates: start: 201808
  7. LAMOTRIGINE. [Concomitant]
     Active Substance: LAMOTRIGINE
     Dosage: 250 MILLIGRAM, ONCE A DAY, 125 MILLIGRAM, 2X/DAY (BID)
     Route: 065
     Dates: start: 201903
  8. LAMOTRIGINE. [Concomitant]
     Active Substance: LAMOTRIGINE
     Dosage: 200 MILLIGRAM, ONCE A DAY, 100 MILLIGRAM, 2X/DAY (BID)
     Route: 065
  9. BRIVIACT [Suspect]
     Active Substance: BRIVARACETAM
     Dosage: 40 MILLIGRAM, ONCE A DAY, (20 MILLIGRAM, 2X/DAY (BID))
     Route: 065
     Dates: start: 20180601
  10. BRIVIACT [Suspect]
     Active Substance: BRIVARACETAM
     Dosage: 150 MILLIGRAM, ONCE A DAY, (75 MILLIGRAM, 2X/DAY (BID))
     Route: 065
     Dates: start: 201808
  11. ZONISAMIDE. [Concomitant]
     Active Substance: ZONISAMIDE
     Indication: EPILEPSY
     Dosage: UNK
     Route: 065
  12. LAMOTRIGINE. [Concomitant]
     Active Substance: LAMOTRIGINE
     Dosage: 400 MILLIGRAM, ONCE A DAY, 200 MILLIGRAM, 2X/DAY (BID)
     Route: 065
     Dates: start: 201806
  13. LEVETIRACETAM. [Suspect]
     Active Substance: LEVETIRACETAM
     Indication: EPILEPSY
     Dosage: 1000 MILLIGRAM, ONCE A DAY, 500 MILLIGRAM, 2X/DAY (BID)
     Route: 065
     Dates: start: 201805
  14. LEVETIRACETAM. [Suspect]
     Active Substance: LEVETIRACETAM
     Dosage: 750 MILLIGRAM, ONCE A DAY, 250MG AM AND 500MG PM, 2X/DAY (BID)
     Route: 065
     Dates: start: 2019
  15. BRIVIACT [Suspect]
     Active Substance: BRIVARACETAM
     Indication: EPILEPSY
     Dosage: 80 MILLIGRAM, ONCE A DAY (30MG AM AND 50MG PM, 2X/DAY (BID))
     Route: 065
     Dates: start: 201807
  16. LAMOTRIGINE. [Concomitant]
     Active Substance: LAMOTRIGINE
     Indication: EPILEPSY
     Dosage: 500 MILLIGRAM, ONCE A DAY, 250 MILLIGRAM, 2X/DAY (BID)
     Route: 065
     Dates: start: 201805
  17. LEVETIRACETAM. [Suspect]
     Active Substance: LEVETIRACETAM
     Dosage: 1000 MILLIGRAM, ONCE A DAY, 500 MILLIGRAM, 2X/DAY (BID)
     Route: 065
     Dates: start: 201806
  18. LEVETIRACETAM. [Suspect]
     Active Substance: LEVETIRACETAM
     Dosage: 500 MILLIGRAM, ONCE A DAY, 250 MILLIGRAM, 2X/DAY (BID)
     Route: 065
     Dates: start: 201903
  19. BRIVIACT [Suspect]
     Active Substance: BRIVARACETAM
     Dosage: 100 MILLIGRAM, ONCE A DAY, (50 MILLIGRAM, 2X/DAY (BID))
     Route: 065
  20. LAMOTRIGINE. [Concomitant]
     Active Substance: LAMOTRIGINE
     Dosage: 300 MILLIGRAM, ONCE A DAY, 150 MILLIGRAM, 2X/DAY (BID)
     Route: 065
     Dates: start: 201902
  21. LEVETIRACETAM. [Suspect]
     Active Substance: LEVETIRACETAM
     Dosage: 2000 MILLIGRAM, ONCE A DAY, 1000 MILLIGRAM, 2X/DAY (BID)
     Route: 065
  22. BRIVIACT [Suspect]
     Active Substance: BRIVARACETAM
     Dosage: 60 MILLIGRAM, ONCE A DAY, (30 MILLIGRAM, 2X/DAY (BID))
     Route: 065
  23. VALPROATE [Concomitant]
     Active Substance: VALPROIC ACID
     Indication: EPILEPSY
     Dosage: UNK
     Route: 065
  24. LAMOTRIGINE. [Concomitant]
     Active Substance: LAMOTRIGINE
     Dosage: 300 MILLIGRAM, ONCE A DAY, 150 MILLIGRAM, 2X/DAY (BID)
     Route: 065
     Dates: start: 201808, end: 201808
  25. LAMOTRIGINE. [Concomitant]
     Active Substance: LAMOTRIGINE
     Dosage: 300 MILLIGRAM, ONCE A DAY, 150 MILLIGRAM, 2X/DAY (BID)
     Route: 065
     Dates: start: 201811

REACTIONS (6)
  - Underdose [Unknown]
  - Seizure [Unknown]
  - Dizziness [Unknown]
  - Off label use [Unknown]
  - Mood swings [Unknown]
  - Irritability [Unknown]

NARRATIVE: CASE EVENT DATE: 201805
